FAERS Safety Report 6283704-8 (Version None)
Quarter: 2009Q3

REPORT INFORMATION
  Report Type: 
  Country: None (occurrence: None)
  Receive Date: 20090724
  Receipt Date: 20090528
  Transmission Date: 20100115
  Serious: No
  Sender: FDA-Public Use
  Company Number: US-ALEXION-A200900430

PATIENT
  Sex: Female

DRUGS (6)
  1. SOLIRIS [Suspect]
     Indication: PAROXYSMAL NOCTURNAL HAEMOGLOBINURIA
     Dosage: 600 MG, QW
     Route: 042
     Dates: start: 20071001, end: 20071029
  2. SOLIRIS [Suspect]
     Dosage: 900 MG, Q2W
     Route: 042
     Dates: start: 20071105
  3. PREDNISONE TAB [Suspect]
     Dosage: 20 MG, QD PRE-SOLIRIS
  4. PREDNISONE TAB [Suspect]
     Dosage: 4 MG, QD
     Route: 048
  5. PREDNISONE TAB [Suspect]
     Dosage: 3 MG, QD
  6. DESFERAL                           /00062903/ [Concomitant]
     Indication: IRON OVERLOAD
     Dosage: UNK
     Route: 048

REACTIONS (2)
  - ARTHRITIS [None]
  - WHITE BLOOD CELL COUNT DECREASED [None]
